FAERS Safety Report 9936823 (Version 1)
Quarter: 2014Q1

REPORT INFORMATION
  Report Type: Spontaneous
  Country: US (occurrence: None)
  Receive Date: 20140110
  Receipt Date: 20140110
  Transmission Date: 20141002
  Serious: Yes (Hospitalization)
  Sender: FDA-Public Use
  Company Number: 163-22393-13064463

PATIENT
  Age: 34 Year
  Sex: Female

DRUGS (2)
  1. ISTODAX [Suspect]
     Indication: MYCOSIS FUNGOIDES
     Route: 042
     Dates: start: 20130401, end: 20130719
  2. ISTODAX [Suspect]
     Indication: MYCOSIS FUNGOIDES STAGE III
     Route: 042
     Dates: start: 20130401, end: 20130719

REACTIONS (3)
  - Skin exfoliation [None]
  - Pyrexia [None]
  - Tachycardia [None]
